FAERS Safety Report 20584036 (Version 1)
Quarter: 2022Q1

REPORT INFORMATION
  Report Type: Spontaneous
  Country: FR (occurrence: FR)
  Receive Date: 20220311
  Receipt Date: 20220311
  Transmission Date: 20220423
  Serious: Yes (Congenital Anomaly, Other)
  Sender: FDA-Public Use
  Company Number: FR-ABBVIE-22K-056-4308302-00

PATIENT
  Sex: Female
  Weight: 2.94 kg

DRUGS (1)
  1. VALPROATE SODIUM [Suspect]
     Active Substance: VALPROATE SODIUM
     Indication: Maternal exposure timing unspecified
     Route: 064

REACTIONS (86)
  - Foetal anticonvulsant syndrome [Unknown]
  - Dysmorphism [Unknown]
  - Hypertelorism [Unknown]
  - Limb malformation [Unknown]
  - Bone deformity [Unknown]
  - Foot deformity [Unknown]
  - Hypotonia [Unknown]
  - Intellectual disability [Unknown]
  - Allodynia [Unknown]
  - Psychomotor retardation [Unknown]
  - Speech disorder developmental [Unknown]
  - Disturbance in attention [Unknown]
  - Executive dysfunction [Unknown]
  - Visual impairment [Unknown]
  - Behaviour disorder [Unknown]
  - Lordosis [Unknown]
  - Scoliosis [Unknown]
  - Heart disease congenital [Unknown]
  - Ventricular septal defect [Unknown]
  - Hepatosplenomegaly [Unknown]
  - Opisthotonus [Unknown]
  - Skin disorder [Unknown]
  - Macrocephaly [Unknown]
  - Ear, nose and throat infection [Unknown]
  - Respiratory disorder [Unknown]
  - Hirsutism [Unknown]
  - Juvenile idiopathic arthritis [Unknown]
  - Polyarthritis [Unknown]
  - Learning disorder [Unknown]
  - Aphasia [Unknown]
  - Premature baby [Unknown]
  - Prominent epicanthal folds [Unknown]
  - Retrognathia [Unknown]
  - Congenital hand malformation [Unknown]
  - Hypertonia [Unknown]
  - Developmental delay [Unknown]
  - Psychomotor skills impaired [Unknown]
  - Educational problem [Unknown]
  - Laryngitis [Unknown]
  - Ventricular enlargement [Unknown]
  - Hypermobility syndrome [Unknown]
  - Bronchiolitis [Unknown]
  - Ventricular enlargement [Unknown]
  - Disorientation [Unknown]
  - Turner^s syndrome [Unknown]
  - Albright^s disease [Unknown]
  - Kyphosis congenital [Unknown]
  - Multiple congenital abnormalities [Unknown]
  - Cleft palate [Unknown]
  - Spinal deformity [Unknown]
  - Head deformity [Unknown]
  - Back disorder [Unknown]
  - Jaundice [Unknown]
  - Congenital joint malformation [Unknown]
  - Mixed anxiety and depressive disorder [Unknown]
  - Ear infection [Unknown]
  - Cognitive disorder [Unknown]
  - Intervertebral disc degeneration [Unknown]
  - Aggression [Unknown]
  - Arthralgia [Unknown]
  - Dysmorphism [Unknown]
  - Miliaria [Unknown]
  - Vulvitis [Unknown]
  - Dermatosis [Unknown]
  - Pain [Unknown]
  - Pruritus [Unknown]
  - Ankle fracture [Unknown]
  - Inflammatory pain [Unknown]
  - Heterophoria [Unknown]
  - Binocular eye movement disorder [Unknown]
  - Chest pain [Unknown]
  - Spinal osteoarthritis [Unknown]
  - Physical examination abnormal [Unknown]
  - Tendon disorder [Unknown]
  - Constipation [Unknown]
  - Myopia [Unknown]
  - Rheumatic disorder [Unknown]
  - Anxiety [Unknown]
  - Seborrhoeic dermatitis [Unknown]
  - Tenosynovitis [Unknown]
  - Ligament sprain [Unknown]
  - Overweight [Unknown]
  - Weight increased [Unknown]
  - Fatigue [Unknown]
  - Headache [Unknown]
  - Foetal exposure during pregnancy [Unknown]
